FAERS Safety Report 9424225 (Version 1)
Quarter: 2013Q3

REPORT INFORMATION
  Report Type: Spontaneous
  Country: US (occurrence: None)
  Receive Date: 20130726
  Receipt Date: 20130726
  Transmission Date: 20140515
  Serious: Yes (Hospitalization)
  Sender: FDA-Public Use
  Company Number: None

PATIENT
  Age: 0 Day
  Sex: Female

DRUGS (2)
  1. ESCITALOPRAM [Suspect]
     Indication: ANXIETY
     Dates: start: 20120404, end: 20120515
  2. ESCITALOPRAM [Suspect]
     Indication: DEPRESSION
     Dates: start: 20120404, end: 20120515

REACTIONS (10)
  - Drug-induced liver injury [None]
  - Fatigue [None]
  - Pain [None]
  - Blood bilirubin increased [None]
  - Aspartate aminotransferase increased [None]
  - Alanine aminotransferase increased [None]
  - Blood alkaline phosphatase increased [None]
  - Influenza [None]
  - Condition aggravated [None]
  - Pyrexia [None]
